FAERS Safety Report 4662269-8 (Version None)
Quarter: 2005Q2

REPORT INFORMATION
  Report Type: 
  Country: None (occurrence: None)
  Receive Date: 20050512
  Receipt Date: 20050505
  Transmission Date: 20051028
  Serious: Yes (Other)
  Sender: FDA-Public Use
  Company Number: S05-USA-02339-01

PATIENT
  Age: 50 Year
  Sex: Female

DRUGS (5)
  1. CELEXA [Suspect]
     Indication: DEPRESSION
     Dosage: 60 MG QD PO
     Route: 048
     Dates: start: 20031201, end: 20050301
  2. CELEXA [Suspect]
     Indication: DEPRESSION
     Dosage: 10 MG QD PO
     Route: 048
     Dates: start: 20010601
  3. CELEXA [Suspect]
     Indication: DEPRESSION
     Dosage: 40 MG QD PO
     Route: 048
     Dates: end: 20031201
  4. ALCOHOL (ALCOHOL) [Suspect]
     Dates: start: 20040801, end: 20050425
  5. XANAX [Concomitant]

REACTIONS (4)
  - ALCOHOL USE [None]
  - INTERVERTEBRAL DISC PROTRUSION [None]
  - SUICIDAL IDEATION [None]
  - SUICIDE ATTEMPT [None]
